FAERS Safety Report 24563512 (Version 1)
Quarter: 2024Q4

REPORT INFORMATION
  Report Type: Spontaneous
  Country: AU (occurrence: AU)
  Receive Date: 20241030
  Receipt Date: 20241030
  Transmission Date: 20250114
  Serious: Yes (Other)
  Sender: CIPLA
  Company Number: AU-CIPLA LTD.-2024AU12205

PATIENT

DRUGS (39)
  1. ESCITALOPRAM [Suspect]
     Active Substance: ESCITALOPRAM OXALATE
     Indication: Major depression
     Dosage: UNK
     Route: 065
  2. ESCITALOPRAM [Suspect]
     Active Substance: ESCITALOPRAM OXALATE
     Indication: Anxiety
  3. LAMOTRIGINE [Suspect]
     Active Substance: LAMOTRIGINE
     Indication: Major depression
     Dosage: 200 MILLIGRAM, QD (200 MG DAILY)
     Route: 065
     Dates: start: 2023
  4. LAMOTRIGINE [Suspect]
     Active Substance: LAMOTRIGINE
     Indication: Anxiety
  5. BUPROPION HYDROCHLORIDE [Suspect]
     Active Substance: BUPROPION HYDROCHLORIDE
     Indication: Major depression
     Dosage: UNK
     Route: 065
  6. BUPROPION HYDROCHLORIDE [Suspect]
     Active Substance: BUPROPION HYDROCHLORIDE
     Indication: Anxiety
  7. SPRAVATO [Suspect]
     Active Substance: ESKETAMINE
     Indication: Major depression
     Dosage: ESKETAMINE TREATMENTS TWICE WEEKLY FOR 4 WEEKS, ESKETAMINE TREATMENTS TWICE WEEKLY FOR 4 WEEKS, RECE
     Route: 065
     Dates: start: 202401
  8. SPRAVATO [Suspect]
     Active Substance: ESKETAMINE
     Indication: Anxiety
  9. LITHIUM [Suspect]
     Active Substance: LITHIUM
     Indication: Major depression
     Dosage: UNK
     Route: 065
  10. LITHIUM [Suspect]
     Active Substance: LITHIUM
     Indication: Anxiety
  11. DIAZEPAM [Suspect]
     Active Substance: DIAZEPAM
     Indication: Major depression
     Dosage: 4.5 MILLIGRAM, QD (SLOWLY WEANING OFF, BUT KEPT AT A STABLE DOSE FOR THE DURATION OF THE TRIAL)
     Route: 065
     Dates: start: 2023
  12. DIAZEPAM [Suspect]
     Active Substance: DIAZEPAM
     Indication: Anxiety
  13. FLUVOXAMINE MALEATE [Suspect]
     Active Substance: FLUVOXAMINE MALEATE
     Indication: Major depression
     Dosage: UNK
     Route: 065
  14. FLUVOXAMINE MALEATE [Suspect]
     Active Substance: FLUVOXAMINE MALEATE
     Indication: Anxiety
  15. VORTIOXETINE HYDROBROMIDE [Suspect]
     Active Substance: VORTIOXETINE HYDROBROMIDE
     Indication: Major depression
     Dosage: UNK
     Route: 065
  16. VORTIOXETINE HYDROBROMIDE [Suspect]
     Active Substance: VORTIOXETINE HYDROBROMIDE
     Indication: Anxiety
  17. REBOXETINE [Suspect]
     Active Substance: REBOXETINE
     Indication: Major depression
     Dosage: UNK
     Route: 065
  18. REBOXETINE [Suspect]
     Active Substance: REBOXETINE
     Indication: Anxiety
  19. AGOMELATINE [Suspect]
     Active Substance: AGOMELATINE
     Indication: Major depression
     Dosage: UNK
     Route: 065
  20. AGOMELATINE [Suspect]
     Active Substance: AGOMELATINE
     Indication: Anxiety
  21. VENLAFAXINE HYDROCHLORIDE [Suspect]
     Active Substance: VENLAFAXINE HYDROCHLORIDE
     Indication: Major depression
     Dosage: UNK
     Route: 065
  22. VENLAFAXINE HYDROCHLORIDE [Suspect]
     Active Substance: VENLAFAXINE HYDROCHLORIDE
     Indication: Anxiety
  23. MIRTAZAPINE [Suspect]
     Active Substance: MIRTAZAPINE
     Indication: Major depression
     Dosage: UNK
     Route: 065
  24. MIRTAZAPINE [Suspect]
     Active Substance: MIRTAZAPINE
     Indication: Anxiety
  25. NORTRIPTYLINE HYDROCHLORIDE [Suspect]
     Active Substance: NORTRIPTYLINE HYDROCHLORIDE
     Indication: Major depression
     Dosage: UNK
     Route: 065
  26. NORTRIPTYLINE HYDROCHLORIDE [Suspect]
     Active Substance: NORTRIPTYLINE HYDROCHLORIDE
     Indication: Anxiety
  27. DOXEPIN HYDROCHLORIDE [Suspect]
     Active Substance: DOXEPIN HYDROCHLORIDE
     Indication: Major depression
     Dosage: UNK
     Route: 065
  28. DOXEPIN HYDROCHLORIDE [Suspect]
     Active Substance: DOXEPIN HYDROCHLORIDE
     Indication: Anxiety
  29. CLOMIPRAMINE HYDROCHLORIDE [Suspect]
     Active Substance: CLOMIPRAMINE HYDROCHLORIDE
     Indication: Major depression
     Dosage: UNK
     Route: 065
  30. CLOMIPRAMINE HYDROCHLORIDE [Suspect]
     Active Substance: CLOMIPRAMINE HYDROCHLORIDE
     Indication: Anxiety
  31. TRANYLCYPROMINE SULFATE [Suspect]
     Active Substance: TRANYLCYPROMINE SULFATE
     Indication: Major depression
     Dosage: UNK
     Route: 065
  32. TRANYLCYPROMINE SULFATE [Suspect]
     Active Substance: TRANYLCYPROMINE SULFATE
     Indication: Anxiety
  33. PHENELZINE SULFATE [Suspect]
     Active Substance: PHENELZINE SULFATE
     Indication: Major depression
     Dosage: UNK
     Route: 065
  34. PHENELZINE SULFATE [Suspect]
     Active Substance: PHENELZINE SULFATE
     Indication: Anxiety
  35. QUETIAPINE FUMARATE [Suspect]
     Active Substance: QUETIAPINE FUMARATE
     Indication: Major depression
     Dosage: UNK
     Route: 065
  36. QUETIAPINE FUMARATE [Suspect]
     Active Substance: QUETIAPINE FUMARATE
     Indication: Anxiety
  37. OLANZAPINE [Suspect]
     Active Substance: OLANZAPINE
     Indication: Major depression
     Dosage: UNK
     Route: 065
  38. OLANZAPINE [Suspect]
     Active Substance: OLANZAPINE
     Indication: Anxiety
  39. SUVOREXANT [Concomitant]
     Active Substance: SUVOREXANT
     Indication: Sleep disorder
     Dosage: UNK
     Route: 065

REACTIONS (3)
  - Therapeutic product effect incomplete [Unknown]
  - Adverse drug reaction [Unknown]
  - Off label use [Unknown]
